FAERS Safety Report 10243304 (Version 2)
Quarter: 2014Q3

REPORT INFORMATION
  Report Type: Spontaneous
  Country: FR (occurrence: FR)
  Receive Date: 20140618
  Receipt Date: 20140916
  Transmission Date: 20150326
  Serious: Yes (Other)
  Sender: FDA-Public Use
  Company Number: PHHY2014FR073597

PATIENT
  Age: 62 Year
  Sex: Female

DRUGS (7)
  1. TARKA [Concomitant]
     Active Substance: TRANDOLAPRIL\VERAPAMIL HYDROCHLORIDE
     Indication: HYPERTENSION
     Dosage: UNK UKN, UNK
  2. DEDROGYL [Concomitant]
     Active Substance: CALCIFEDIOL
     Dosage: UNK UKN, UNK
  3. ACLASTA [Suspect]
     Active Substance: ZOLEDRONIC ACID
     Indication: OSTEOPOROTIC FRACTURE
     Dosage: 1 DF, ( 1 INFUSION ANNUALLY)
     Route: 042
     Dates: start: 20140321
  4. ACLASTA [Suspect]
     Active Substance: ZOLEDRONIC ACID
     Indication: POLYARTHRITIS
  5. IXPRIM [Suspect]
     Active Substance: ACETAMINOPHEN\TRAMADOL HYDROCHLORIDE
     Indication: PAIN
     Dosage: UNK
     Dates: end: 20140609
  6. PIASCLEDINE [Concomitant]
     Active Substance: AVOCADO OIL\SOYBEAN OIL
     Dosage: UNK UKN, UNK
  7. DOLIPRANE [Concomitant]
     Active Substance: ACETAMINOPHEN
     Indication: PAIN
     Dosage: UNK UKN, UNK

REACTIONS (9)
  - Polymyalgia rheumatica [Unknown]
  - Chest pain [Unknown]
  - Pyrexia [Unknown]
  - Headache [Unknown]
  - Arthralgia [Unknown]
  - Spinal disorder [Unknown]
  - Back pain [Unknown]
  - Vomiting [Recovered/Resolved]
  - Pain in extremity [Unknown]

NARRATIVE: CASE EVENT DATE: 20140321
